FAERS Safety Report 13281309 (Version 1)
Quarter: 2017Q1

REPORT INFORMATION
  Report Type: Spontaneous
  Country: US (occurrence: US)
  Receive Date: 20170301
  Receipt Date: 20170301
  Transmission Date: 20170428
  Serious: No
  Sender: FDA-Public Use
  Company Number: US-INSYS THERAPEUTICS, INC-INS201607-000343

PATIENT
  Sex: Male
  Weight: 108.86 kg

DRUGS (2)
  1. SUBSYS [Suspect]
     Active Substance: FENTANYL
     Indication: CHEST PAIN
  2. SUBSYS [Suspect]
     Active Substance: FENTANYL
     Indication: ABDOMINAL PAIN
     Route: 060

REACTIONS (2)
  - Product quality issue [Unknown]
  - Drug ineffective [Unknown]
